FAERS Safety Report 4491872-3 (Version None)
Quarter: 2004Q4

REPORT INFORMATION
  Report Type: 
  Country: None (occurrence: None)
  Receive Date: 20041028
  Receipt Date: 20041028
  Transmission Date: 20050328
  Serious: Yes (Hospitalization)
  Sender: FDA-Public Use
  Company Number: None

PATIENT
  Sex: Male
  Weight: 89 kg

DRUGS (5)
  1. BENAZEPRIL HCL [Suspect]
     Indication: CARDIAC FAILURE CONGESTIVE
     Dosage: 10 MG   QD   ORAL
     Route: 048
     Dates: start: 20031001, end: 20041022
  2. FUROSEMIDE [Concomitant]
  3. FAMOTIDINE [Concomitant]
  4. PHENYTOIN [Concomitant]
  5. INSULIN [Concomitant]

REACTIONS (2)
  - ANGIONEUROTIC OEDEMA [None]
  - OBSTRUCTIVE AIRWAYS DISORDER [None]
